FAERS Safety Report 9517542 (Version 6)
Quarter: 2013Q4

REPORT INFORMATION
  Report Type: Spontaneous
  Country: FR (occurrence: FR)
  Receive Date: 20130911
  Receipt Date: 20131105
  Transmission Date: 20140711
  Serious: Yes (Hospitalization)
  Sender: FDA-Public Use
  Company Number: FR-TAKEDA-TPA2012A06325

PATIENT
  Age: 62 Year
  Sex: Male

DRUGS (3)
  1. ADENURIC [Suspect]
     Indication: HYPERURICAEMIA
     Dosage: 80 MG, QD
     Route: 048
     Dates: start: 20120606, end: 20120731
  2. DIAMICRON [Suspect]
     Indication: DIABETES MELLITUS
     Dosage: 60 MG, QD
     Route: 048
     Dates: start: 20120606, end: 20120731
  3. STAGID [Suspect]
     Indication: DIABETES MELLITUS
     Dosage: UNK
     Route: 048
     Dates: start: 20120322, end: 20120731

REACTIONS (5)
  - Exfoliative rash [Recovered/Resolved]
  - Rash maculo-papular [Recovered/Resolved]
  - Venous insufficiency [Recovered/Resolved]
  - Rash erythematous [Recovered/Resolved]
  - Pruritus [Recovered/Resolved]
